FAERS Safety Report 10581166 (Version 1)
Quarter: 2014Q4

REPORT INFORMATION
  Report Type: Spontaneous
  Country: US (occurrence: None)
  Receive Date: 20141110
  Receipt Date: 20141110
  Transmission Date: 20150529
  Serious: Yes (Other)
  Sender: FDA-Public Use
  Company Number: 20140710

PATIENT
  Age: 41 Year
  Sex: Female

DRUGS (1)
  1. INJECTAFER [Suspect]
     Active Substance: FERRIC CARBOXYMALTOSE
     Indication: IRON DEFICIENCY ANAEMIA
     Dates: start: 20141016, end: 20141016

REACTIONS (5)
  - Cyanosis [None]
  - Dyspnoea [None]
  - Tachycardia [None]
  - Dizziness [None]
  - Chest discomfort [None]

NARRATIVE: CASE EVENT DATE: 20141016
